FAERS Safety Report 5115439-9 (Version None)
Quarter: 2006Q3

REPORT INFORMATION
  Report Type: 
  Country: None (occurrence: None)
  Receive Date: 20060922
  Receipt Date: 20060915
  Transmission Date: 20061208
  Serious: Yes (Life-Threatening)
  Sender: FDA-Public Use
  Company Number: 2006111629

PATIENT
  Age: 90 Year
  Sex: Female

DRUGS (4)
  1. BESITRAN (SERTRALINE) [Suspect]
     Dosage: (50 MG), ORAL
     Route: 048
     Dates: start: 20041209, end: 20050919
  2. LORAZEPAM [Suspect]
     Dosage: 25 MG, ORAL
     Route: 048
     Dates: end: 20050919
  3. DILUTOL (TORASEMIDE) [Suspect]
     Dosage: 5 MG (5 MG,1 IN 1 D), ORAL
     Route: 048
     Dates: start: 20050428, end: 20050919
  4. CESPLON PLUS (CAPTOPRIL, HYDROCHLOROTHIAZIDE) [Suspect]
     Dosage: 50/25 MG,ORAL
     Route: 048
     Dates: start: 19950101, end: 20050919

REACTIONS (1)
  - RENAL IMPAIRMENT [None]
